FAERS Safety Report 7372958 (Version 4)
Quarter: 2012Q4

REPORT INFORMATION
  Report Type: 
  Country: US (occurrence: US)
  Receive Date: 20100503
  Receipt Date: 20121221
  Transmission Date: 20130627
  Serious: Yes (Hospitalization)
  Sender: FDA-Public Use
  Company Number: US-BIOGENIDEC-2010BI013791

PATIENT
  Age: 48 Year
  Sex: Female

DRUGS (25)
  1. TYSABRI [Suspect]
     Indication: MULTIPLE SCLEROSIS
     Route: 042
     Dates: start: 20050218, end: 20050218
  2. TYSABRI [Suspect]
     Indication: MULTIPLE SCLEROSIS
     Route: 042
     Dates: start: 20080702, end: 20100323
  3. TYSABRI [Suspect]
     Indication: MULTIPLE SCLEROSIS
     Route: 042
     Dates: start: 20100713, end: 20110916
  4. TYSABRI [Suspect]
     Indication: MULTIPLE SCLEROSIS
     Route: 042
     Dates: start: 20120508
  5. BACLOFEN [Concomitant]
     Indication: MUSCLE SPASTICITY
  6. REQUIP XL [Concomitant]
  7. WELLBUTRIN [Concomitant]
  8. LYRICA [Concomitant]
  9. SYNTHROID [Concomitant]
  10. HYDROMORPHONE [Concomitant]
  11. KADIAN [Concomitant]
  12. ASPIRIN [Concomitant]
  13. PREDNISIONE [Concomitant]
  14. CALCITROL [Concomitant]
  15. OMEPRAZOLE [Concomitant]
  16. BENAZEPRIL [Concomitant]
  17. VESICARE [Concomitant]
  18. NYSTATIN [Concomitant]
  19. FLAXSEED OIL [Concomitant]
  20. IRON [Concomitant]
  21. VITAMIN D [Concomitant]
  22. CALCIUM WITH D [Concomitant]
  23. VITAMIN C [Concomitant]
  24. VITAMINE E [Concomitant]
  25. PRIMROSE OIL [Concomitant]

REACTIONS (6)
  - Papillary thyroid cancer [Unknown]
  - Blood calcium decreased [Recovered/Resolved]
  - Anaemia [Recovered/Resolved]
  - Blood test abnormal [Recovered/Resolved]
  - Gait disturbance [Not Recovered/Not Resolved]
  - Dysstasia [Not Recovered/Not Resolved]
